FAERS Safety Report 7788874-8 (Version None)
Quarter: 2011Q3

REPORT INFORMATION
  Report Type: 
  Country: None (occurrence: None)
  Receive Date: 20110928
  Receipt Date: 20110921
  Transmission Date: 20111222
  Serious: Yes (Death)
  Sender: FDA-Public Use
  Company Number: AE-911-292

PATIENT
  Age: 69 Year
  Sex: Female

DRUGS (10)
  1. LIDOCAINE [Suspect]
     Indication: BACK PAIN
     Dosage: 3 PATCHES A DAY
     Dates: start: 20090101
  2. LIDOCAINE [Suspect]
     Indication: OSTEOPOROSIS
     Dosage: 3 PATCHES A DAY
     Dates: start: 20090101
  3. VICODIN [Concomitant]
  4. TENEX [Concomitant]
  5. ADVAIR DISKUS 100/50 [Concomitant]
  6. VERAPAMIL [Concomitant]
  7. XANAX [Concomitant]
  8. PLAVIX [Concomitant]
  9. KLOR-CON [Concomitant]
  10. LYRICA [Concomitant]

REACTIONS (1)
  - CHRONIC OBSTRUCTIVE PULMONARY DISEASE [None]
